FAERS Safety Report 20144303 (Version 1)
Quarter: 2021Q4

REPORT INFORMATION
  Report Type: Spontaneous
  Country: US (occurrence: None)
  Receive Date: 20211202
  Receipt Date: 20211202
  Transmission Date: 20220304
  Serious: Yes (Hospitalization)
  Sender: FDA-Public Use
  Company Number: None

PATIENT
  Age: 52 Year
  Sex: Male

DRUGS (3)
  1. COSENTYX [Suspect]
     Active Substance: SECUKINUMAB
     Indication: Psoriasis
     Dosage: OTHER FREQUENCY : Q4WKS;?
     Route: 058
     Dates: start: 20210129
  2. OLMESA MEDOX [Concomitant]
  3. PANTOPRAZOLE [Concomitant]

REACTIONS (1)
  - Benign gastrointestinal neoplasm [None]

NARRATIVE: CASE EVENT DATE: 20211013
